FAERS Safety Report 6527423-9 (Version None)
Quarter: 2010Q1

REPORT INFORMATION
  Report Type: 
  Country: None (occurrence: None)
  Receive Date: 20100105
  Receipt Date: 20091230
  Transmission Date: 20100710
  Serious: Yes (Death, Other)
  Sender: FDA-Public Use
  Company Number: AT-AMGEN-QUU383244

PATIENT
  Sex: Female

DRUGS (3)
  1. NEULASTA [Suspect]
     Indication: CHEMOTHERAPY
     Route: 065
  2. EPIRUBICIN [Concomitant]
  3. PACLITAXEL [Concomitant]

REACTIONS (2)
  - AGRANULOCYTOSIS [None]
  - THERAPEUTIC RESPONSE DECREASED [None]
